FAERS Safety Report 7878412-3 (Version None)
Quarter: 2011Q4

REPORT INFORMATION
  Report Type: 
  Country: None (occurrence: None)
  Receive Date: 20111003
  Receipt Date: 20110629
  Transmission Date: 20120403
  Serious: Yes (Other)
  Sender: FDA-Public Use
  Company Number: 287274USA

PATIENT
  Age: 10 Year
  Sex: Female

DRUGS (2)
  1. TOPIRAMATE [Suspect]
     Dosage: (25 MG),ORAL
     Route: 048
  2. LAMOTRIGINE [Suspect]
     Dosage: (25 MG),ORAL
     Route: 048

REACTIONS (8)
  - CONVULSION [None]
  - GAIT DISTURBANCE [None]
  - MEDICATION ERROR [None]
  - POSTURE ABNORMAL [None]
  - DROOLING [None]
  - DYSARTHRIA [None]
  - FATIGUE [None]
  - HYPOPHAGIA [None]
